FAERS Safety Report 13464116 (Version 1)
Quarter: 2017Q2

REPORT INFORMATION
  Report Type: Spontaneous
  Country: US (occurrence: US)
  Receive Date: 20170420
  Receipt Date: 20170420
  Transmission Date: 20170830
  Serious: Yes (Other)
  Sender: FDA-Public Use
  Company Number: US-ROCHE-715181

PATIENT
  Age: 15 Year
  Sex: Female
  Weight: 45.4 kg

DRUGS (1)
  1. ACCUTANE [Suspect]
     Active Substance: ISOTRETINOIN
     Indication: ACNE CYSTIC
     Dosage: 20 MG IN MORNING AND 40 MG IN NIGHT
     Route: 065
     Dates: start: 19971008, end: 19980308

REACTIONS (4)
  - Colitis ulcerative [Unknown]
  - Blood alkaline phosphatase increased [Unknown]
  - Acne [Unknown]
  - Inflammatory bowel disease [Unknown]

NARRATIVE: CASE EVENT DATE: 19971027
